FAERS Safety Report 10203304 (Version 2)
Quarter: 2014Q2

REPORT INFORMATION
  Report Type: Spontaneous
  Country: JP (occurrence: JP)
  Receive Date: 20140529
  Receipt Date: 20140610
  Transmission Date: 20141212
  Serious: Yes (Life-Threatening, Hospitalization, Other)
  Sender: FDA-Public Use
  Company Number: JP-AMGEN-JPNSP2014039595

PATIENT
  Age: 78 Year
  Sex: Female
  Weight: 55.8 kg

DRUGS (5)
  1. ENBREL [Suspect]
     Indication: RHEUMATOID ARTHRITIS
     Dosage: 50 MG, UNK
     Route: 058
     Dates: start: 20120307, end: 201211
  2. RHEUMATREX                         /00113802/ [Suspect]
     Indication: RHEUMATOID ARTHRITIS
     Dosage: 6 MG, WEEKLY
     Route: 048
     Dates: start: 2000
  3. RHEUMATREX                         /00113802/ [Suspect]
     Dosage: 8 MG, WEEKLY
     Route: 048
     Dates: end: 20071202
  4. METHOTREXATE                       /00113802/ [Suspect]
     Indication: RHEUMATOID ARTHRITIS
     Dosage: 10 MG, WEEKLY
     Route: 048
     Dates: start: 20071203, end: 20100131
  5. METOLATE [Suspect]
     Indication: RHEUMATOID ARTHRITIS
     Dosage: 8 MG, WEEKLY
     Route: 048
     Dates: start: 20100201, end: 20110508

REACTIONS (1)
  - Lymphoma [Recovering/Resolving]
